FAERS Safety Report 9681409 (Version 1)
Quarter: 2013Q4

REPORT INFORMATION
  Report Type: Spontaneous
  Country: GB (occurrence: None)
  Receive Date: 20131107
  Receipt Date: 20131107
  Transmission Date: 20140711
  Serious: Yes (Life-Threatening, Hospitalization)
  Sender: FDA-Public Use
  Company Number: 2013-003466

PATIENT
  Age: 57 Year
  Sex: Female

DRUGS (10)
  1. SARAFEM [Suspect]
     Indication: DEPRESSION
     Route: 048
     Dates: end: 20130314
  2. ITRACONAZOLE [Suspect]
     Route: 048
     Dates: start: 20130125, end: 20130311
  3. RUPAFIN [Suspect]
     Indication: ASTHMA
     Route: 048
     Dates: end: 20130314
  4. SALBUTAMOL /00139502/ (SALBUTAMOL SULFATE) [Concomitant]
  5. CARBOCISTEINE (CARBOCISTEINE) [Concomitant]
  6. MONTELUKAST (MONTELUKAST) [Concomitant]
  7. OMEPRAZOLE (OMEPRAZOLE) [Concomitant]
  8. SODIUM CHLORIDE [Concomitant]
  9. SYMBICORT [Concomitant]
  10. UNIPHYLLIN CONTINUS (THEOPHYLLINE) [Concomitant]

REACTIONS (8)
  - Syncope [None]
  - Ventricular fibrillation [None]
  - Electrocardiogram QT prolonged [None]
  - Unresponsive to stimuli [None]
  - Urinary tract infection [None]
  - Long QT syndrome [None]
  - Convulsion [None]
  - Cardiac arrest [None]
